FAERS Safety Report 7539752-0 (Version None)
Quarter: 2011Q2

REPORT INFORMATION
  Report Type: 
  Country: None (occurrence: None)
  Receive Date: 20110610
  Receipt Date: 20110601
  Transmission Date: 20111010
  Serious: Yes (Hospitalization)
  Sender: FDA-Public Use
  Company Number: US-MYLANLABS-2011S1011447

PATIENT
  Age: 60 Year
  Sex: Male

DRUGS (5)
  1. ULORIC [Suspect]
     Indication: GOUT
     Route: 048
  2. HERBAL MIXTURE [Suspect]
  3. INDOMETHACIN SODIUM [Suspect]
     Indication: PAIN
  4. INDOMETHACIN SODIUM [Suspect]
     Indication: GOUT
  5. COLCHICINE [Suspect]

REACTIONS (5)
  - WHITE BLOOD CELL COUNT INCREASED [None]
  - RENAL FAILURE ACUTE [None]
  - PYREXIA [None]
  - GOUTY TOPHUS [None]
  - TROPONIN INCREASED [None]
